FAERS Safety Report 9691040 (Version 1)
Quarter: 2013Q4

REPORT INFORMATION
  Report Type: Spontaneous
  Country: GB (occurrence: GB)
  Receive Date: 20131115
  Receipt Date: 20131115
  Transmission Date: 20140711
  Serious: Yes (Hospitalization, Other)
  Sender: FDA-Public Use
  Company Number: GB-ELI_LILLY_AND_COMPANY-GB201311001835

PATIENT
  Sex: Male

DRUGS (5)
  1. FLUOXETINE [Suspect]
     Indication: PRODUCT USED FOR UNKNOWN INDICATION
     Dosage: UNK, UNKNOWN
     Route: 065
  2. CODEINE [Suspect]
     Indication: PRODUCT USED FOR UNKNOWN INDICATION
     Dosage: UNK UNK, UNKNOWN
     Route: 065
  3. CITALOPRAM [Concomitant]
  4. SODIUM VALPROATE [Concomitant]
  5. PHENYTOIN [Concomitant]

REACTIONS (5)
  - Serotonin syndrome [Recovered/Resolved]
  - Joint dislocation [Recovered/Resolved]
  - Compression fracture [Recovered/Resolved]
  - Pneumonia [Recovered/Resolved]
  - Intentional drug misuse [Unknown]
